FAERS Safety Report 18700910 (Version 1)
Quarter: 2021Q1

REPORT INFORMATION
  Report Type: Spontaneous
  Country: US (occurrence: US)
  Receive Date: 20210104
  Receipt Date: 20210104
  Transmission Date: 20210419
  Serious: No
  Sender: FDA-Public Use
  Company Number: None

PATIENT
  Age: 71 Year
  Sex: Male
  Weight: 81.27 kg

DRUGS (9)
  1. SYNTHROID [Concomitant]
     Active Substance: LEVOTHYROXINE SODIUM
  2. PLAVIX [Concomitant]
     Active Substance: CLOPIDOGREL BISULFATE
  3. PREDNISONE. [Concomitant]
     Active Substance: PREDNISONE
  4. LIPITOR [Concomitant]
     Active Substance: ATORVASTATIN CALCIUM
  5. METOPROLOL. [Concomitant]
     Active Substance: METOPROLOL
  6. ABIRATERONE. [Suspect]
     Active Substance: ABIRATERONE ACETATE
     Indication: PROSTATE CANCER
     Route: 048
     Dates: start: 20200520
  7. UNISOM SLEEPTABS [Concomitant]
     Active Substance: DOXYLAMINE SUCCINATE
  8. CALCIUM [Concomitant]
     Active Substance: CALCIUM
  9. VIT D [Concomitant]
     Active Substance: VITAMIN D NOS

REACTIONS (1)
  - Weight increased [None]

NARRATIVE: CASE EVENT DATE: 20210104
